FAERS Safety Report 5707244-7 (Version None)
Quarter: 2008Q2

REPORT INFORMATION
  Report Type: 
  Country: None (occurrence: None)
  Receive Date: 20080414
  Receipt Date: 20080414
  Transmission Date: 20081010
  Serious: Yes (Life-Threatening, Hospitalization, Other)
  Sender: FDA-Public Use
  Company Number: None

PATIENT
  Age: 5 Year
  Sex: Male
  Weight: 15.8759 kg

DRUGS (1)
  1. SINGULAIR [Suspect]
     Indication: ASTHMA
     Dosage: 5 MG CHEWABLE 1 TIME PER DAY PO
     Route: 048
     Dates: start: 20060801, end: 20080328

REACTIONS (6)
  - ABNORMAL BEHAVIOUR [None]
  - ANXIETY [None]
  - ELEVATED MOOD [None]
  - NEGATIVE THOUGHTS [None]
  - SCHOOL REFUSAL [None]
  - SUICIDAL IDEATION [None]
